FAERS Safety Report 13884036 (Version 2)
Quarter: 2019Q4

REPORT INFORMATION
  Report Type: Report from Study
  Country: None (occurrence: BR)
  Receive Date: 20170820
  Receipt Date: 20191121
  Transmission Date: 20200122
  Serious: Yes (Death, Other)
  Sender: FDA-Public Use
  Company Number: BR-ABBVIE-13P-020-1122315-00

PATIENT
  Age: 69 Year
  Sex: Female
  Weight: 63 kg

DRUGS (1)
  1. HUMIRA [Suspect]
     Active Substance: ADALIMUMAB
     Indication: CROHN^S DISEASE
     Route: 058
     Dates: start: 20130223

REACTIONS (5)
  - Anaphylactic shock [Fatal]
  - Metabolic disorder [Fatal]
  - Sepsis [Fatal]
  - Pneumonia aspiration [Fatal]
  - Seizure [Fatal]

NARRATIVE: CASE EVENT DATE: 20130607
